FAERS Safety Report 13456113 (Version 2)
Quarter: 2017Q2

REPORT INFORMATION
  Report Type: Report from Study
  Country: US (occurrence: US)
  Receive Date: 20170419
  Receipt Date: 20170506
  Transmission Date: 20170830
  Serious: Yes (Hospitalization, Other)
  Sender: FDA-Public Use
  Company Number: US-AMGEN-USASL2017056686

PATIENT
  Age: 73 Year
  Sex: Male

DRUGS (2)
  1. REPATHA [Suspect]
     Active Substance: EVOLOCUMAB
     Indication: HYPERCHOLESTEROLAEMIA
     Dosage: 140 MG, Q2WK
     Route: 065
  2. REPATHA [Suspect]
     Active Substance: EVOLOCUMAB
     Indication: BLOOD CHOLESTEROL ABNORMAL

REACTIONS (8)
  - Influenza like illness [Unknown]
  - Oxygen therapy [Unknown]
  - Musculoskeletal pain [Unknown]
  - Stent placement [Unknown]
  - Weight abnormal [Unknown]
  - Blood pressure abnormal [Unknown]
  - Back pain [Unknown]
  - Neck pain [Unknown]
